FAERS Safety Report 13711012 (Version 2)
Quarter: 2017Q3

REPORT INFORMATION
  Report Type: Report from Study
  Country: US (occurrence: US)
  Receive Date: 20170703
  Receipt Date: 20170725
  Transmission Date: 20171127
  Serious: No
  Sender: FDA-Public Use
  Company Number: US-GILEAD-2017-0277158

PATIENT
  Age: 3 Year
  Sex: Male
  Weight: 12 kg

DRUGS (23)
  1. AMBRISENTAN [Suspect]
     Active Substance: AMBRISENTAN
     Indication: PULMONARY ARTERIAL HYPERTENSION
     Dosage: 2.5 MG, QD
     Route: 048
     Dates: start: 20170523
  2. BASILIXIMAB [Concomitant]
     Active Substance: BASILIXIMAB
  3. SPIRONOLACTONE. [Concomitant]
     Active Substance: SPIRONOLACTONE
  4. BUMETANIDE. [Concomitant]
     Active Substance: BUMETANIDE
  5. PREDNISONE. [Concomitant]
     Active Substance: PREDNISONE
  6. GABAPENTIN. [Concomitant]
     Active Substance: GABAPENTIN
  7. MELATONIN [Concomitant]
     Active Substance: MELATONIN
  8. LANSOPRAZOLE. [Concomitant]
     Active Substance: LANSOPRAZOLE
  9. AMBRISENTAN [Suspect]
     Active Substance: AMBRISENTAN
     Indication: LEFT VENTRICULAR FAILURE
  10. TADALAFIL [Concomitant]
     Active Substance: TADALAFIL
  11. FLUTICASONA                        /00972201/ [Concomitant]
  12. LORAZEPAM. [Concomitant]
     Active Substance: LORAZEPAM
  13. FLUCONAZOLE. [Concomitant]
     Active Substance: FLUCONAZOLE
  14. ENOXAPARIN [Concomitant]
     Active Substance: ENOXAPARIN
  15. POLYVISOL                          /02170301/ [Concomitant]
  16. MAGNESIUM OXIDE. [Concomitant]
     Active Substance: MAGNESIUM OXIDE
  17. MYCOPHENOLATE [Concomitant]
     Active Substance: MYCOPHENOLIC ACID
  18. SULFAMETHOXAZOLE [Concomitant]
     Active Substance: SULFAMETHOXAZOLE
  19. CLONIDINE. [Concomitant]
     Active Substance: CLONIDINE
  20. METHADONE [Concomitant]
     Active Substance: METHADONE HYDROCHLORIDE
  21. TACROLIMUS. [Concomitant]
     Active Substance: TACROLIMUS
  22. ENALAPRIL [Concomitant]
     Active Substance: ENALAPRIL
  23. VALGANCICLOVIR. [Concomitant]
     Active Substance: VALGANCICLOVIR

REACTIONS (1)
  - Off label use [Not Recovered/Not Resolved]

NARRATIVE: CASE EVENT DATE: 20170523
